FAERS Safety Report 10382950 (Version 2)
Quarter: 2018Q4

REPORT INFORMATION
  Report Type: Report from Study
  Country: US (occurrence: US)
  Receive Date: 20140813
  Receipt Date: 20181019
  Transmission Date: 20190204
  Serious: Yes (Hospitalization, Other)
  Sender: FDA-Public Use
  Company Number: US-SA-2014SA059794

PATIENT
  Age: 41 Year
  Sex: Male
  Weight: 110 kg

DRUGS (1)
  1. AGALSIDASE BETA [Suspect]
     Active Substance: AGALSIDASE BETA
     Indication: FABRY^S DISEASE
     Dosage: UNK UNK,Q2
     Route: 042
     Dates: start: 20070912

REACTIONS (7)
  - Cardiac stress test [Unknown]
  - Atrioventricular block [Unknown]
  - Burning sensation [Unknown]
  - Cardiac operation [Unknown]
  - Weight decreased [Unknown]
  - Arthralgia [Unknown]
  - Therapeutic response decreased [Unknown]

NARRATIVE: CASE EVENT DATE: 20180511
